FAERS Safety Report 21592991 (Version 4)
Quarter: 2024Q4

REPORT INFORMATION
  Report Type: Report from Study
  Country: US (occurrence: US)
  Receive Date: 20221114
  Receipt Date: 20241003
  Transmission Date: 20250114
  Serious: Yes (Other)
  Sender: ABBVIE
  Company Number: US-ABBVIE-4196516

PATIENT
  Sex: Male

DRUGS (2)
  1. SKYRIZI [Suspect]
     Active Substance: RISANKIZUMAB-RZAA
     Indication: Psoriasis
     Route: 058
     Dates: start: 2020
  2. SKYRIZI [Suspect]
     Active Substance: RISANKIZUMAB-RZAA
     Route: 058
     Dates: start: 20191021

REACTIONS (4)
  - Neoplasm malignant [Recovering/Resolving]
  - Skin disorder [Recovered/Resolved]
  - Foot deformity [Recovering/Resolving]
  - Acrochordon [Recovering/Resolving]

NARRATIVE: CASE EVENT DATE: 20240101
